FAERS Safety Report 15889102 (Version 7)
Quarter: 2019Q3

REPORT INFORMATION
  Report Type: Report from Study
  Country: CO (occurrence: CO)
  Receive Date: 20190130
  Receipt Date: 20190925
  Transmission Date: 20191004
  Serious: Yes (Hospitalization, Other)
  Sender: FDA-Public Use
  Company Number: CO-ACTELION-A-CH2019-185543

PATIENT
  Age: 77 Year
  Sex: Male
  Weight: 60 kg

DRUGS (5)
  1. CARVEDILOL. [Concomitant]
     Active Substance: CARVEDILOL
  2. FUROSEMIDE. [Suspect]
     Active Substance: FUROSEMIDE
     Indication: FLUID RETENTION
     Route: 065
  3. OPSUMIT [Suspect]
     Active Substance: MACITENTAN
     Indication: PULMONARY ARTERIAL HYPERTENSION
     Dosage: 10 MG, QD
     Route: 048
     Dates: start: 20190122
  4. OXYGEN. [Concomitant]
     Active Substance: OXYGEN
  5. ASPIRIN. [Concomitant]
     Active Substance: ASPIRIN

REACTIONS (20)
  - Inguinal hernia [Recovering/Resolving]
  - Hypotension [Not Recovered/Not Resolved]
  - Chest pain [Unknown]
  - Loss of consciousness [Not Recovered/Not Resolved]
  - Fall [Not Recovered/Not Resolved]
  - Abdominal pain upper [Recovering/Resolving]
  - Dizziness [Not Recovered/Not Resolved]
  - Catheterisation cardiac [Unknown]
  - Pulmonary embolism [Not Recovered/Not Resolved]
  - Boredom [Unknown]
  - Fluid retention [Recovered/Resolved]
  - Apnoea [Recovered/Resolved]
  - Choking sensation [Not Recovered/Not Resolved]
  - Influenza like illness [Not Recovered/Not Resolved]
  - Fatigue [Not Recovered/Not Resolved]
  - Constipation [Not Recovered/Not Resolved]
  - Ear pain [Recovering/Resolving]
  - Blood pressure inadequately controlled [Recovering/Resolving]
  - Peripheral swelling [Recovered/Resolved]
  - Anaesthesia [Unknown]

NARRATIVE: CASE EVENT DATE: 20190122
